FAERS Safety Report 16271478 (Version 1)
Quarter: 2019Q2

REPORT INFORMATION
  Report Type: Report from Study
  Country: None (occurrence: BR)
  Receive Date: 20190506
  Receipt Date: 20190506
  Transmission Date: 20190711
  Serious: Yes (Hospitalization, Disabling, Other)
  Sender: FDA-Public Use
  Company Number: BR-ABBVIE-17K-020-2146244-00

PATIENT
  Age: 73 Year
  Sex: Female
  Weight: 49 kg

DRUGS (10)
  1. PROLIA [Concomitant]
     Active Substance: DENOSUMAB
     Indication: BONE DISORDER
     Route: 058
  2. FOLIC ACID. [Concomitant]
     Active Substance: FOLIC ACID
     Indication: HEPATOBILLIARY DISORDER PROPHYLAXIS
     Route: 048
  3. FIXA CAL [Concomitant]
     Active Substance: MINERALS\VITAMINS
     Indication: BONE DISORDER
     Route: 048
  4. DEFLAIMMUN [Concomitant]
     Active Substance: DEFLAZACORT
     Indication: RHEUMATIC DISORDER
     Route: 048
  5. PANTOPRAZOLE [Concomitant]
     Active Substance: PANTOPRAZOLE
     Indication: GASTROINTESTINAL DISORDER
     Route: 048
  6. AMLODIPINE [Concomitant]
     Active Substance: AMLODIPINE BESYLATE
     Indication: CARDIOVASCULAR EVENT PROPHYLAXIS
     Route: 048
  7. HUMIRA [Suspect]
     Active Substance: ADALIMUMAB
     Indication: RHEUMATOID ARTHRITIS
     Route: 058
     Dates: start: 20130301, end: 2017
  8. DEFLAIMMUN [Concomitant]
     Active Substance: DEFLAZACORT
     Indication: INFLAMMATION
  9. HUMIRA [Suspect]
     Active Substance: ADALIMUMAB
     Route: 058
  10. TECNOMET [Concomitant]
     Active Substance: METHOTREXATE
     Indication: OSTEOARTHRITIS
     Route: 048
     Dates: start: 2004

REACTIONS (9)
  - Blood pressure abnormal [Not Recovered/Not Resolved]
  - Femur fracture [Recovered/Resolved]
  - Muscular weakness [Unknown]
  - Hypoparathyroidism [Unknown]
  - Osteomalacia [Unknown]
  - Hypertension [Recovering/Resolving]
  - Bedridden [Recovered/Resolved]
  - Fall [Recovered/Resolved]
  - Osteoarthritis [Unknown]

NARRATIVE: CASE EVENT DATE: 2014
